FAERS Safety Report 8254680-3 (Version None)
Quarter: 2012Q2

REPORT INFORMATION
  Report Type: 
  Country: None (occurrence: None)
  Receive Date: 20120403
  Receipt Date: 20120326
  Transmission Date: 20120825
  Serious: Yes (Hospitalization, Other)
  Sender: FDA-Public Use
  Company Number: US-ELI_LILLY_AND_COMPANY-US201201004741

PATIENT
  Sex: Female

DRUGS (33)
  1. ALBUTEROL [Concomitant]
  2. CLOPIDOGREL [Concomitant]
  3. OMEPRAZOLE [Concomitant]
  4. FORTEO [Suspect]
     Indication: OSTEOPOROSIS
     Dosage: 20 UG, QD
  5. METHADONE HCL [Concomitant]
  6. ALLOPURINOL [Concomitant]
  7. CILOSTAZOL [Concomitant]
  8. PSYLLIUM [Concomitant]
  9. ASCORBIC ACID [Concomitant]
  10. LOPERAMIDE [Concomitant]
  11. FLUTICASONE FUROATE [Concomitant]
  12. FERROUS SULFATE TAB [Concomitant]
  13. FORTEO [Suspect]
     Dosage: 20 UG, QD
     Route: 065
  14. DIPHENOXYLATE HCL + ATROPINE SULFATE [Concomitant]
  15. METOPROLOL TARTRATE [Concomitant]
  16. ISOSORBIDE DINITRATE [Concomitant]
  17. CALCIUM CARBONATE [Concomitant]
  18. TIOTROPIUM [Concomitant]
  19. LASIX [Concomitant]
     Dosage: UNK
  20. GABAPENTIN [Concomitant]
  21. ASPIRIN [Concomitant]
  22. FUROSEMIDE [Concomitant]
  23. PLAVIX [Concomitant]
  24. LASIX [Concomitant]
     Dosage: 0.5 MG, UNK
  25. FORTEO [Suspect]
     Dosage: 20 UG, QD
     Route: 065
  26. OXYCODONE HCL [Concomitant]
  27. ACETAMINOPHEN [Concomitant]
  28. FORTEO [Suspect]
     Dosage: 20 UG, QD
     Route: 065
  29. ONDANSETRON [Concomitant]
  30. LISINOPRIL [Concomitant]
  31. SIMVASTATIN [Concomitant]
  32. AMLODIPINE [Concomitant]
  33. ERGOCALCIFEROL [Concomitant]

REACTIONS (30)
  - JOINT SWELLING [None]
  - APHONIA [None]
  - MALAISE [None]
  - FALL [None]
  - ACTIVITIES OF DAILY LIVING IMPAIRED [None]
  - RASH [None]
  - DIARRHOEA [None]
  - CLOSTRIDIAL INFECTION [None]
  - OROPHARYNGEAL DISCOMFORT [None]
  - GAIT DISTURBANCE [None]
  - FATIGUE [None]
  - ANGIOPATHY [None]
  - PULMONARY OEDEMA [None]
  - ERYTHEMA [None]
  - ASTHENIA [None]
  - PAIN [None]
  - FUNCTIONAL GASTROINTESTINAL DISORDER [None]
  - DRUG DOSE OMISSION [None]
  - DEHYDRATION [None]
  - ARTHROPATHY [None]
  - SKIN DISORDER [None]
  - INJECTION SITE HAEMATOMA [None]
  - COUGH [None]
  - RENAL DISORDER [None]
  - OEDEMA PERIPHERAL [None]
  - TREMOR [None]
  - FEELING ABNORMAL [None]
  - OROPHARYNGEAL PAIN [None]
  - EATING DISORDER [None]
  - FLUID INTAKE REDUCED [None]
